FAERS Safety Report 6767576-0 (Version None)
Quarter: 2010Q2

REPORT INFORMATION
  Report Type: 
  Country: None (occurrence: None)
  Receive Date: 20100614
  Receipt Date: 20100607
  Transmission Date: 20101027
  Serious: Yes (Hospitalization)
  Sender: FDA-Public Use
  Company Number: PHHO2009DE11363

PATIENT
  Sex: Male
  Weight: 82 kg

DRUGS (1)
  1. TASIGNA [Suspect]
     Indication: CHRONIC MYELOID LEUKAEMIA
     Dosage: 300 MG BID/600 BID
     Route: 048
     Dates: start: 20071113

REACTIONS (4)
  - ARTERIAL STENT INSERTION [None]
  - CORONARY ARTERY OCCLUSION [None]
  - FEMORAL ARTERIAL STENOSIS [None]
  - VASCULAR GRAFT [None]
